FAERS Safety Report 9934168 (Version 3)
Quarter: 2014Q1

REPORT INFORMATION
  Report Type: Spontaneous
  Country: US (occurrence: US)
  Receive Date: 20140228
  Receipt Date: 20140318
  Transmission Date: 20141002
  Serious: Yes (Hospitalization, Disabling, Other)
  Sender: FDA-Public Use
  Company Number: US-009507513-1203USA01849

PATIENT
  Sex: Female
  Weight: 77.55 kg

DRUGS (7)
  1. FOSAMAX [Suspect]
     Indication: OSTEOPENIA
     Dosage: UNK
     Route: 048
     Dates: start: 1996
  2. FOSAMAX [Suspect]
     Indication: OSTEOPOROSIS
     Dosage: 70 MG, QW
     Route: 048
  3. ACTONEL [Suspect]
     Dosage: 25 MG, UNK
     Dates: start: 200608, end: 200609
  4. OS-CAL (CALCIUM CARBONATE) [Concomitant]
     Indication: OSTEOPOROSIS
     Dosage: 1 TID
  5. CALCIUM (UNSPECIFIED) (+) VITAMIN D (UNSPECIFIED) [Concomitant]
     Indication: OSTEOPOROSIS
  6. NEXIUM [Concomitant]
     Indication: GASTROOESOPHAGEAL REFLUX DISEASE
  7. CRESTOR [Concomitant]
     Indication: HYPERLIPIDAEMIA

REACTIONS (33)
  - Femur fracture [Unknown]
  - Intramedullary rod insertion [Recovering/Resolving]
  - Osteoporosis [Not Recovered/Not Resolved]
  - Stress fracture [Not Recovered/Not Resolved]
  - Low turnover osteopathy [Not Recovered/Not Resolved]
  - Pelvic fracture [Recovered/Resolved]
  - Hemiparesis [Unknown]
  - Asthma [Unknown]
  - Thyroid disorder [Unknown]
  - Hypertension [Unknown]
  - Clavicle fracture [Unknown]
  - Rotator cuff syndrome [Unknown]
  - Rotator cuff syndrome [Unknown]
  - Anaemia [Unknown]
  - Osteoarthritis [Unknown]
  - Cataract [Unknown]
  - Cataract operation [Unknown]
  - Osteoarthritis [Unknown]
  - Upper-airway cough syndrome [Unknown]
  - Muscular weakness [Unknown]
  - Oophorectomy [Unknown]
  - Rib fracture [Unknown]
  - Spinal compression fracture [Unknown]
  - Intervertebral disc degeneration [Unknown]
  - Spinal compression fracture [Unknown]
  - Spinal compression fracture [Unknown]
  - Fall [Unknown]
  - Lumbar vertebral fracture [Unknown]
  - Blood glucose increased [Unknown]
  - Musculoskeletal pain [Unknown]
  - Oedema peripheral [Unknown]
  - Back pain [Recovering/Resolving]
  - Arthralgia [Unknown]
